FAERS Safety Report 8330226 (Version 7)
Quarter: 2013Q1

REPORT INFORMATION
  Report Type: Spontaneous
  Country: JP (occurrence: JP)
  Receive Date: 20120111
  Receipt Date: 20130220
  Transmission Date: 20140127
  Serious: Yes (Life-Threatening, Hospitalization)
  Sender: FDA-Public Use
  Company Number: JP-SANOFI-AVENTIS-2012SA001486

PATIENT
  Age: 40 Year
  Sex: Male
  Weight: 66.4 kg

DRUGS (9)
  1. AMARYL [Suspect]
     Indication: SUICIDE ATTEMPT
     Route: 065
  2. AMARYL [Suspect]
     Indication: DIABETES MELLITUS
     Route: 065
  3. AMARYL [Suspect]
     Indication: SUICIDE ATTEMPT
     Dosage: DOSE: OVERDOSE?DOSE- 14 TABLETS
     Route: 048
     Dates: start: 20120101, end: 20120101
  4. AMARYL [Suspect]
     Indication: DIABETES MELLITUS
     Dosage: DOSE: OVERDOSE?DOSE- 14 TABLETS
     Route: 048
     Dates: start: 20120101, end: 20120101
  5. MYSLEE [Suspect]
     Indication: SUICIDE ATTEMPT
     Dosage: DOSE- 5MGX 2 TIMES= 10 TABLETS
     Route: 048
  6. MYSLEE [Suspect]
     Indication: SUICIDE ATTEMPT
     Route: 048
     Dates: start: 20120101, end: 20120101
  7. MIGLITOL [Concomitant]
     Route: 048
  8. JANUVIA [Concomitant]
     Route: 048
  9. INSULIN [Concomitant]
     Indication: DIABETES MELLITUS
     Dates: start: 200412

REACTIONS (5)
  - Suicide attempt [Unknown]
  - Intentional overdose [Unknown]
  - Cardiomyopathy [Recovering/Resolving]
  - Hypoglycaemia [Recovering/Resolving]
  - Altered state of consciousness [Recovering/Resolving]
